FAERS Safety Report 8801690 (Version 1)
Quarter: 2012Q4

REPORT INFORMATION
  Report Type: Report from Study
  Country: CA (occurrence: CA)
  Receive Date: 20120921
  Receipt Date: 20120921
  Transmission Date: 20130627
  Serious: Yes (Other)
  Sender: FDA-Public Use
  Company Number: CA-ROCHE-1134144

PATIENT
  Sex: Male
  Weight: 88 kg

DRUGS (3)
  1. AVASTIN [Suspect]
     Indication: GLIOBLASTOMA
     Route: 042
     Dates: start: 20120113, end: 20120823
  2. AVASTIN [Suspect]
     Route: 065
     Dates: start: 20120420
  3. DILANTIN [Concomitant]
     Route: 065
     Dates: end: 201204

REACTIONS (2)
  - Disease progression [Not Recovered/Not Resolved]
  - Drug effect decreased [Not Recovered/Not Resolved]
